FAERS Safety Report 10404429 (Version 2)
Quarter: 2014Q2

REPORT INFORMATION
  Report Type: Spontaneous
  Country: US (occurrence: None)
  Receive Date: 20140214
  Receipt Date: 20140625
  Transmission Date: 20141212
  Serious: No
  Sender: FDA-Public Use
  Company Number: A-NJ2013-92235

PATIENT
  Age: 81 Year
  Sex: Female

DRUGS (3)
  1. OPSUMIT (MACITENTAN) [Suspect]
     Indication: PULMONARY ARTERIAL HYPERTENSION
     Route: 048
     Dates: start: 20140103, end: 20140124
  2. TRACLEER (BOSENTAN) [Concomitant]
  3. WARFARIN (WARFARIN) [Concomitant]

REACTIONS (7)
  - Suffocation feeling [None]
  - Asthenia [None]
  - Dizziness [None]
  - Diarrhoea [None]
  - Anaemia [None]
  - Headache [None]
  - Nausea [None]
